FAERS Safety Report 18516044 (Version 1)
Quarter: 2020Q4

REPORT INFORMATION
  Report Type: Spontaneous
  Country: US (occurrence: US)
  Receive Date: 20201117
  Receipt Date: 20201117
  Transmission Date: 20210114
  Serious: Yes (Hospitalization)
  Sender: FDA-Public Use
  Company Number: None

PATIENT
  Age: 35 Year
  Sex: Female

DRUGS (2)
  1. LETROZOLE 2.5MG TAB [Suspect]
     Active Substance: LETROZOLE
     Indication: BREAST CANCER FEMALE
     Route: 048
     Dates: start: 20200214
  2. CENTRUM [Concomitant]
     Active Substance: VITAMINS

REACTIONS (2)
  - Road traffic accident [None]
  - Therapy interrupted [None]

NARRATIVE: CASE EVENT DATE: 20201116
